FAERS Safety Report 18867080 (Version 2)
Quarter: 2021Q3

REPORT INFORMATION
  Report Type: Spontaneous
  Country: GB (occurrence: GB)
  Receive Date: 20210209
  Receipt Date: 20210908
  Transmission Date: 20211014
  Serious: Yes (Death, Hospitalization, Other)
  Sender: FDA-Public Use
  Company Number: GB-35507-2021-01496

PATIENT
  Age: 39 Year
  Sex: Male

DRUGS (11)
  1. PROPOFOL. [Suspect]
     Active Substance: PROPOFOL
     Indication: STATUS EPILEPTICUS
     Dosage: 1 MILLIGRAM/KILOGRAM/HR
     Route: 042
     Dates: end: 20170128
  2. PHENOBARBITONE [PHENOBARBITAL] [Suspect]
     Active Substance: PHENOBARBITAL
     Indication: STATUS EPILEPTICUS
     Dosage: UNK
     Route: 065
  3. VALPROATE SODIUM. [Suspect]
     Active Substance: VALPROATE SODIUM
     Indication: STATUS EPILEPTICUS
     Dosage: UNK
     Route: 065
  4. PHENYTOIN SODIUM. [Suspect]
     Active Substance: PHENYTOIN SODIUM
     Indication: STATUS EPILEPTICUS
     Dosage: UNK
     Route: 065
  5. FENTANYL. [Suspect]
     Active Substance: FENTANYL
     Indication: STATUS EPILEPTICUS
     Dosage: 100 MICROGRAM/HR
     Route: 042
     Dates: end: 20170128
  6. CLONAZEPAM. [Suspect]
     Active Substance: CLONAZEPAM
     Indication: STATUS EPILEPTICUS
     Dosage: UNK
     Route: 065
  7. PREDNISOLONE. [Suspect]
     Active Substance: PREDNISOLONE
     Indication: STATUS EPILEPTICUS
     Dosage: UNK, HIGH DOSE
     Route: 065
  8. TOPIRAMAT [Suspect]
     Active Substance: TOPIRAMATE
     Indication: STATUS EPILEPTICUS
     Dosage: UNK
     Route: 048
  9. LEVETIRACETAM. [Suspect]
     Active Substance: LEVETIRACETAM
     Indication: STATUS EPILEPTICUS
     Dosage: UNK
     Route: 065
  10. MIDAZOLAM. [Suspect]
     Active Substance: MIDAZOLAM
     Indication: STATUS EPILEPTICUS
     Dosage: 20 MILLIGRAM/HR
     Route: 042
     Dates: end: 20170128
  11. THIOPENTAL SODIUM. [Suspect]
     Active Substance: THIOPENTAL SODIUM
     Indication: STATUS EPILEPTICUS
     Dosage: 4.8 MILLIGRAM/KILOGRAM,UP TO 4.80 MG/KG/H
     Route: 042
     Dates: start: 20161114, end: 20170109

REACTIONS (17)
  - Coagulopathy [Fatal]
  - Infection [Fatal]
  - Pseudomembranous colitis [Fatal]
  - Malabsorption [Fatal]
  - Abdominal wall haematoma [Fatal]
  - Colitis ischaemic [Fatal]
  - Autonomic nervous system imbalance [Fatal]
  - Metabolic acidosis [Fatal]
  - Acute kidney injury [Fatal]
  - Deep vein thrombosis [Fatal]
  - Hepatitis fulminant [Fatal]
  - Sepsis [Fatal]
  - Intensive care unit acquired weakness [Fatal]
  - Multiple organ dysfunction syndrome [Fatal]
  - Product use in unapproved indication [Fatal]
  - Off label use [Fatal]
  - Intentional product use issue [Fatal]
